FAERS Safety Report 7019603-3 (Version None)
Quarter: 2010Q3

REPORT INFORMATION
  Report Type: 
  Country: None (occurrence: None)
  Receive Date: 20100928
  Receipt Date: 20100928
  Transmission Date: 20110219
  Serious: Yes (Hospitalization)
  Sender: FDA-Public Use
  Company Number: None

PATIENT
  Age: 7 Year
  Sex: Male
  Weight: 23.9 kg

DRUGS (8)
  1. RAD001 (EVEROLIMUS) 5.0 MG/M2 [Suspect]
     Dosage: 4.0 MG
     Dates: start: 20100728
  2. NOVARTIS [Suspect]
     Dosage: DAILY AND BY MOUTH
     Route: 048
  3. LEVOXYL [Concomitant]
  4. ZOFRAN [Concomitant]
  5. BACTRIM [Concomitant]
  6. NEURONTIN [Concomitant]
  7. LORAZEPAM [Concomitant]
  8. DIAZEPAM [Concomitant]

REACTIONS (17)
  - ABDOMINAL PAIN [None]
  - ABNORMAL BEHAVIOUR [None]
  - AGITATION [None]
  - ANXIETY [None]
  - APNOEA [None]
  - BRADYCARDIA [None]
  - BRAIN COMPRESSION [None]
  - COGNITIVE DISORDER [None]
  - CONFUSIONAL STATE [None]
  - CRANIAL NERVE DISORDER [None]
  - DISEASE PROGRESSION [None]
  - HEADACHE [None]
  - IRRITABILITY [None]
  - MUSCLE TWITCHING [None]
  - NEUROTOXICITY [None]
  - PERSONALITY CHANGE [None]
  - TARDIVE DYSKINESIA [None]
